FAERS Safety Report 21621467 (Version 1)
Quarter: 2022Q4

REPORT INFORMATION
  Report Type: Spontaneous
  Country: AT (occurrence: AT)
  Receive Date: 20221121
  Receipt Date: 20221121
  Transmission Date: 20230112
  Serious: Yes (Other)
  Sender: FDA-Public Use
  Company Number: AT-PFIZER INC-PV202200105426

PATIENT
  Age: 9 Year
  Sex: Male

DRUGS (9)
  1. CARBOPLATIN [Suspect]
     Active Substance: CARBOPLATIN
     Dosage: 4500 MG/M2
  2. ADRIAMYCIN [Suspect]
     Active Substance: DOXORUBICIN HYDROCHLORIDE
     Dosage: 440 MG/M2
  3. CISPLATIN [Suspect]
     Active Substance: CISPLATIN
     Dosage: 175 MG/M2
  4. ETOPOSIDE [Suspect]
     Active Substance: ETOPOSIDE
     Dosage: 1334 MG/M2
  5. IDARUBICIN HYDROCHLORIDE [Suspect]
     Active Substance: IDARUBICIN HYDROCHLORIDE
     Dosage: 20 MG/M2
  6. VINCRISTINE [Suspect]
     Active Substance: VINCRISTINE
     Dosage: 4.3 MG/M2
  7. CYCLOPHOSPHAMIDE [Suspect]
     Active Substance: CYCLOPHOSPHAMIDE
     Dosage: 4.6 G/M2
  8. IFOSFAMIDE [Suspect]
     Active Substance: IFOSFAMIDE
     Dosage: 16.3 G/M2
  9. THIOTEPA [Suspect]
     Active Substance: THIOTEPA
     Dosage: 900 MG/M2

REACTIONS (1)
  - Renal impairment [Unknown]
